FAERS Safety Report 5510819-1 (Version None)
Quarter: 2007Q4

REPORT INFORMATION
  Report Type: 
  Country: None (occurrence: None)
  Receive Date: 20071108
  Receipt Date: 20071031
  Transmission Date: 20080405
  Serious: Yes (Death)
  Sender: FDA-Public Use
  Company Number: JP-MERCK-0711USA00791

PATIENT
  Age: 29 Year
  Sex: Male

DRUGS (10)
  1. PEPCID [Suspect]
     Route: 041
     Dates: start: 20070101, end: 20071017
  2. MEROPEN [Suspect]
     Route: 041
     Dates: end: 20071018
  3. VANCOMYCIN [Concomitant]
     Route: 065
  4. LASIX [Concomitant]
     Route: 065
  5. LASIX [Concomitant]
     Route: 065
  6. ELASPOL [Concomitant]
     Route: 065
  7. FUTHAN [Concomitant]
     Route: 065
  8. STRONGER NEO-MINOPHAGEN C [Concomitant]
     Route: 065
  9. ADONA [Concomitant]
     Route: 065
  10. TRANSAMIN [Concomitant]
     Route: 065

REACTIONS (2)
  - PLATELET COUNT DECREASED [None]
  - WHITE BLOOD CELL COUNT DECREASED [None]
